FAERS Safety Report 26086356 (Version 1)
Quarter: 2025Q4

REPORT INFORMATION
  Report Type: Spontaneous
  Country: EU (occurrence: EU)
  Receive Date: 20251125
  Receipt Date: 20251125
  Transmission Date: 20260118
  Serious: Yes (Hospitalization, Disabling)
  Sender: TEVA
  Company Number: None

PATIENT
  Age: 14 Year
  Sex: Female
  Weight: 85 kg

DRUGS (5)
  1. ISOTRETINOIN [Suspect]
     Active Substance: ISOTRETINOIN
     Indication: Acne
     Dosage: 5X1; ISOTRETINOIN ACTAVIS
     Route: 065
     Dates: start: 20241202, end: 20250307
  2. MELATONIN [Concomitant]
     Active Substance: MELATONIN
     Indication: Product used for unknown indication
     Route: 065
  3. TrioBe [Concomitant]
     Indication: Product used for unknown indication
     Route: 065
  4. METHYLPHENIDATE HYDROCHLORIDE [Concomitant]
     Active Substance: METHYLPHENIDATE HYDROCHLORIDE
     Indication: Product used for unknown indication
     Route: 065
  5. Naproxen 2care4 [Concomitant]
     Indication: Product used for unknown indication
     Route: 065

REACTIONS (1)
  - Intracranial pressure increased [Recovered/Resolved with Sequelae]

NARRATIVE: CASE EVENT DATE: 20250219
